FAERS Safety Report 10084663 (Version 3)
Quarter: 2014Q4

REPORT INFORMATION
  Report Type: Spontaneous
  Country: US (occurrence: US)
  Receive Date: 20140417
  Receipt Date: 20141104
  Transmission Date: 20150528
  Serious: Yes (Disabling)
  Sender: FDA-Public Use
  Company Number: US-009507513-1404USA007914

PATIENT
  Sex: Male

DRUGS (3)
  1. PROPECIA [Suspect]
     Active Substance: FINASTERIDE
     Indication: ALOPECIA
     Dosage: 1 MG, QD
     Route: 048
     Dates: start: 20020928, end: 2009
  2. FINASTERIDE. [Suspect]
     Active Substance: FINASTERIDE
     Indication: ALOPECIA
     Dosage: 1 MG, QD
     Dates: start: 200209, end: 2009
  3. NORVASC [Concomitant]
     Active Substance: AMLODIPINE BESYLATE
     Indication: HYPERTENSION
     Dosage: UNK
     Dates: start: 1990

REACTIONS (11)
  - Loss of libido [Unknown]
  - Malaise [Unknown]
  - Tendonitis [Not Recovered/Not Resolved]
  - Depression [Not Recovered/Not Resolved]
  - Tendon rupture [Not Recovered/Not Resolved]
  - Sexual dysfunction [Not Recovered/Not Resolved]
  - Erectile dysfunction [Unknown]
  - Fatigue [Unknown]
  - Cognitive disorder [Not Recovered/Not Resolved]
  - Foot operation [Unknown]
  - Semen volume decreased [Unknown]

NARRATIVE: CASE EVENT DATE: 2002
